FAERS Safety Report 11201746 (Version 2)
Quarter: 2015Q3

REPORT INFORMATION
  Report Type: Report from Study
  Country: US (occurrence: US)
  Receive Date: 20150619
  Receipt Date: 20150706
  Transmission Date: 20151125
  Serious: Yes (Hospitalization, Other)
  Sender: FDA-Public Use
  Company Number: US-MALLINCKRODT-T201502955

PATIENT
  Age: 44 Year
  Sex: Male
  Weight: 67 kg

DRUGS (31)
  1. CALCIUM GLUCONATE. [Concomitant]
     Active Substance: CALCIUM GLUCONATE
     Dosage: 1 GM ONCE
     Route: 042
  2. INSULIN REGULAR [Concomitant]
     Active Substance: INSULIN NOS
     Dosage: 5 UNITS ONCE
     Route: 042
  3. DEXTROSE. [Concomitant]
     Active Substance: DEXTROSE
     Dosage: CONTINUOUS
  4. AMLODIPINE [Concomitant]
     Active Substance: AMLODIPINE BESYLATE
     Dosage: 10 MG DAILY
     Route: 048
  5. HYDRALAZINE [Concomitant]
     Active Substance: HYDRALAZINE HYDROCHLORIDE
     Dosage: PRN
  6. MULTIVITAMINS W/MINERALS [Concomitant]
     Dosage: 1 TABLET DAILY
     Route: 048
  7. IPRATROPIUM/ALBUTEROL [Concomitant]
     Active Substance: ALBUTEROL\IPRATROPIUM
     Dosage: 1 AMPULE; Q 4HOURS WHILE AWAKE
  8. FOLIC ACID. [Concomitant]
     Active Substance: FOLIC ACID
     Dosage: 1 MG DAILY
     Route: 048
  9. GLUCOSE [Concomitant]
     Active Substance: DEXTROSE
     Dosage: PRN
  10. MORPHINE [Concomitant]
     Active Substance: MORPHINE
     Dosage: PRN
  11. ASPIRIN. [Concomitant]
     Active Substance: ASPIRIN
     Dosage: 81 MG DAILY
     Route: 048
  12. SODIUM CHLORIDE. [Concomitant]
     Active Substance: SODIUM CHLORIDE
     Dosage: 10 ML; Q 12 HOUR FLUSH AND PRN
     Route: 042
  13. HEPARIN [Concomitant]
     Active Substance: HEPARIN SODIUM
     Dosage: 5,OOO UNITS; Q8H, SCH
     Route: 058
  14. MAGNESIUM HYDROXIDE. [Concomitant]
     Active Substance: MAGNESIUM HYDROXIDE
     Dosage: PRN
  15. CLONIDINE. [Concomitant]
     Active Substance: CLONIDINE
     Dosage: 2 PATCH  WEEKLY
     Route: 062
  16. HYDRALAZINE [Concomitant]
     Active Substance: HYDRALAZINE HYDROCHLORIDE
     Dosage: 1000 MG QID
     Route: 048
  17. SERTRALINE [Concomitant]
     Active Substance: SERTRALINE HYDROCHLORIDE
     Dosage: 25 MG DIALY
     Route: 048
  18. INSULIN LISPRO [Concomitant]
     Active Substance: INSULIN LISPRO
     Dosage: 0-6 UNITS TID WC
     Route: 058
  19. H.P. ACTHAR [Suspect]
     Active Substance: CORTICOTROPIN
     Indication: PRODUCT USED FOR UNKNOWN INDICATION
     Dosage: 80 UNITS, 2X/WEEK
     Route: 058
     Dates: start: 20150309, end: 20150331
  20. FUROSEMIDE. [Concomitant]
     Active Substance: FUROSEMIDE
     Dosage: 40 MG ONCE
     Route: 042
  21. DEXTROSE. [Concomitant]
     Active Substance: DEXTROSE
     Dosage: 25 GM ONCE
     Route: 042
  22. LOSARTAN. [Concomitant]
     Active Substance: LOSARTAN
     Dosage: 100 MG DAILY
     Route: 048
  23. IOHEXOL [Concomitant]
     Active Substance: IOHEXOL
     Dosage: PRN
  24. ACETAMINOPHEN. [Concomitant]
     Active Substance: ACETAMINOPHEN
     Dosage: PRN
  25. ONDANSETRON [Concomitant]
     Active Substance: ONDANSETRON
     Dosage: PRN
  26. PANTOPRAZOLE [Concomitant]
     Active Substance: PANTOPRAZOLE SODIUM
     Dosage: 40 MG Q AM AC
     Route: 048
  27. METOPROLOL [Concomitant]
     Active Substance: METOPROLOL
     Dosage: 50 MG DAILY
     Route: 048
  28. TRIAMCINOLONE [Concomitant]
     Active Substance: TRIAMCINOLONE
     Dosage: BID
     Route: 061
  29. GLUCAGON. [Concomitant]
     Active Substance: GLUCAGON
     Dosage: PRN
  30. GABAPENTIN. [Concomitant]
     Active Substance: GABAPENTIN
     Dosage: 100 MG TID
     Route: 048
  31. INSULIN LISPRO [Concomitant]
     Active Substance: INSULIN LISPRO
     Dosage: 0-3 UNITS; NIGHTLY
     Route: 058

REACTIONS (1)
  - Pseudomonal sepsis [Recovered/Resolved]

NARRATIVE: CASE EVENT DATE: 20150331
